FAERS Safety Report 15779393 (Version 1)
Quarter: 2019Q1

REPORT INFORMATION
  Report Type: Report from Study
  Country: None (occurrence: CO)
  Receive Date: 20190101
  Receipt Date: 20190101
  Transmission Date: 20190417
  Serious: Yes (Other)
  Sender: FDA-Public Use
  Company Number: CO-ABBVIE-18K-036-2567187-00

PATIENT
  Sex: Male

DRUGS (1)
  1. HUMIRA [Suspect]
     Active Substance: ADALIMUMAB
     Indication: COLITIS ULCERATIVE
     Route: 058
     Dates: start: 20170616

REACTIONS (4)
  - Haemorrhoids [Recovering/Resolving]
  - Anal fistula [Recovering/Resolving]
  - Colitis ulcerative [Not Recovered/Not Resolved]
  - Anorectal discomfort [Unknown]

NARRATIVE: CASE EVENT DATE: 2018
